FAERS Safety Report 6109157-8 (Version None)
Quarter: 2009Q1

REPORT INFORMATION
  Report Type: 
  Country: None (occurrence: None)
  Receive Date: 20090310
  Receipt Date: 20090305
  Transmission Date: 20090719
  Serious: Yes (Other)
  Sender: FDA-Public Use
  Company Number: US-ASTRAZENECA-2009UW05969

PATIENT
  Age: 78 Year
  Sex: Female

DRUGS (2)
  1. TOPROL-XL [Suspect]
     Route: 048
     Dates: start: 19990101
  2. CRESTOR [Suspect]
     Route: 048
     Dates: start: 20070101

REACTIONS (4)
  - BREAST CANCER [None]
  - CARDIAC OPERATION [None]
  - CORONARY ARTERIAL STENT INSERTION [None]
  - HEART VALVE REPLACEMENT [None]
